FAERS Safety Report 7334702-4 (Version None)
Quarter: 2011Q1

REPORT INFORMATION
  Report Type: 
  Country: None (occurrence: None)
  Receive Date: 20110307
  Receipt Date: 20110224
  Transmission Date: 20110831
  Serious: Yes (Other)
  Sender: FDA-Public Use
  Company Number: FR-JNJFOC-20110208375

PATIENT
  Sex: Male

DRUGS (3)
  1. RISPERDAL CONSTA [Suspect]
     Indication: PRODUCT USED FOR UNKNOWN INDICATION
     Route: 030
  2. RISPERDAL CONSTA [Suspect]
     Route: 030
  3. RISPERDAL CONSTA [Suspect]
     Dosage: INITIATED ON 20 OR 25-JAN-2011
     Route: 030

REACTIONS (4)
  - POOR QUALITY DRUG ADMINISTERED [None]
  - INCORRECT STORAGE OF DRUG [None]
  - HALLUCINATION [None]
  - DRUG INEFFECTIVE [None]
